FAERS Safety Report 8656542 (Version 3)
Quarter: 2012Q4

REPORT INFORMATION
  Report Type: 
  Country: US (occurrence: US)
  Receive Date: 20120709
  Receipt Date: 20120904
  Transmission Date: 20130627
  Serious: No
  Sender: FDA-Public Use
  Company Number: US-AMGEN-USASP2012037728

PATIENT
  Age: 60 Year
  Sex: Male

DRUGS (5)
  1. ENBREL [Suspect]
     Indication: PSORIASIS
     Dosage: 50 mg, 2 times/wk
     Route: 058
     Dates: start: 20120601
  2. OLUX E [Concomitant]
     Dosage: UNK UNK, bid
     Route: 061
     Dates: start: 20120604
  3. LOCOID LIPOCREAM [Concomitant]
     Dosage: UNK, two times daily, as needed max of two weeks
     Route: 061
     Dates: start: 20120116
  4. ZEASORB AF                         /00101201/ [Concomitant]
     Dosage: UNK UNK, qd
     Route: 061
     Dates: start: 20120116
  5. BETAMETHASONE DIPROPIONATE [Concomitant]
     Dosage: UNK
     Route: 061

REACTIONS (5)
  - Drug effect incomplete [Not Recovered/Not Resolved]
  - Injection site bruising [Not Recovered/Not Resolved]
  - Injection site discomfort [Not Recovered/Not Resolved]
  - Injection site pain [Not Recovered/Not Resolved]
  - Injection site reaction [Recovered/Resolved]
